FAERS Safety Report 5815192-7 (Version None)
Quarter: 2008Q3

REPORT INFORMATION
  Report Type: 
  Country: None (occurrence: None)
  Receive Date: 20080718
  Receipt Date: 20080714
  Transmission Date: 20090109
  Serious: Yes (Other)
  Sender: FDA-Public Use
  Company Number: US-KINGPHARMUSA00001-K200800812

PATIENT

DRUGS (3)
  1. ALTACE [Suspect]
     Indication: CARDIAC FAILURE
     Dosage: 1.25 MG, BID
     Route: 048
  2. ALTACE [Suspect]
     Dosage: 2.5 MG, BID
     Route: 048
  3. ALTACE [Suspect]
     Dosage: UNK, UNK

REACTIONS (2)
  - BRONCHOSPASM [None]
  - DYSPNOEA [None]
